FAERS Safety Report 5882041-0 (Version None)
Quarter: 2008Q3

REPORT INFORMATION
  Report Type: 
  Country: None (occurrence: None)
  Receive Date: 20080912
  Receipt Date: 20080721
  Transmission Date: 20090109
  Serious: No
  Sender: FDA-Public Use
  Company Number: US-ABBOTT-08P-163-0465093-00

PATIENT
  Sex: Female
  Weight: 63.56 kg

DRUGS (15)
  1. HUMIRA [Suspect]
     Indication: RHEUMATOID ARTHRITIS
     Route: 058
     Dates: start: 20060901, end: 20070401
  2. HUMIRA [Suspect]
     Route: 058
     Dates: start: 20070401
  3. FEXOFENADINE [Concomitant]
     Indication: SEASONAL ALLERGY
     Dosage: 60 MG DAILY
     Route: 048
  4. SULFASALAZINE [Concomitant]
     Indication: RHEUMATOID ARTHRITIS
     Route: 048
     Dates: start: 19850101
  5. IBANDRONATE SODIUM [Concomitant]
     Indication: PROPHYLAXIS
     Dosage: 150 MG MONTHLY
     Route: 048
     Dates: start: 20060101
  6. CALCIUM-SANDOZ [Concomitant]
     Indication: MINERAL SUPPLEMENTATION
     Route: 048
     Dates: start: 19980101
  7. EVOXEC [Concomitant]
     Indication: SJOGREN'S SYNDROME
     Route: 048
  8. HYZAR [Concomitant]
     Indication: HYPERTENSION
     Dosage: 100-25 MG ONE DAILY
     Route: 048
     Dates: start: 19780101
  9. GABAPENTIN [Concomitant]
     Indication: RHEUMATOID ARTHRITIS
     Route: 048
     Dates: start: 19880101
  10. ESOMEPRAZOLE MAGNESIUM [Concomitant]
     Indication: GASTROOESOPHAGEAL REFLUX DISEASE
     Dosage: 40 MG DAILY
     Route: 048
     Dates: start: 19930101
  11. ESTROGENS CONJUGATED [Concomitant]
     Indication: HYSTERECTOMY
     Dosage: 0.625 MG DAILY
     Route: 048
     Dates: start: 19700101
  12. LEVOTHYROXINE SODIUM [Concomitant]
     Indication: HYPOTHYROIDISM
     Dosage: 0.88 MG DAILY
     Route: 048
     Dates: start: 19930101
  13. SENIOR VITAMINS [Concomitant]
     Indication: VITAMIN SUPPLEMENTATION
     Dosage: ONE DAILY
     Route: 048
     Dates: start: 19980101
  14. ACETYLSALICYLIC ACID SRT [Concomitant]
     Indication: PROPHYLAXIS
     Dosage: 81 MG DAILY
     Route: 048
     Dates: start: 20080721
  15. CYCLOSPORINE [Concomitant]
     Indication: DRY EYE
     Dosage: 2 DROPS DAILY
     Route: 061
     Dates: start: 20080201

REACTIONS (4)
  - HEADACHE [None]
  - HYPOAESTHESIA FACIAL [None]
  - PAIN [None]
  - TRANSIENT ISCHAEMIC ATTACK [None]
